FAERS Safety Report 4471357-0 (Version None)
Quarter: 2004Q4

REPORT INFORMATION
  Report Type: 
  Country: None (occurrence: None)
  Receive Date: 20041006
  Receipt Date: 20040924
  Transmission Date: 20050328
  Serious: Yes (Death)
  Sender: FDA-Public Use
  Company Number: 2004-09-1753

PATIENT
  Age: 73 Year
  Sex: Female

DRUGS (13)
  1. TEMOZOLOMIDE CAPSULES [Suspect]
     Indication: ANAPLASTIC ASTROCYTOMA
     Dosage: 200MG/M^2 ORAL; 200 MG/M2QDX5D ORAL FOR 3 CYCLE(S); 200 MG/M2QDX5D ORAL
     Route: 048
     Dates: start: 20040901, end: 20040905
  2. TEMOZOLOMIDE CAPSULES [Suspect]
     Indication: ANAPLASTIC ASTROCYTOMA
     Dosage: 200MG/M^2 ORAL; 200 MG/M2QDX5D ORAL FOR 3 CYCLE(S); 200 MG/M2QDX5D ORAL
     Route: 048
     Dates: end: 20040905
  3. RADIATION THERAPY [Concomitant]
  4. PREVACID [Concomitant]
  5. LIPITOR [Concomitant]
  6. TAPAZOLE [Concomitant]
  7. DECADRON [Concomitant]
  8. MENTAX (BUTENAFINE) [Concomitant]
  9. CALCIUM/VITAMIN D [Concomitant]
  10. COLACE [Concomitant]
  11. MULTI-VITAMINS [Concomitant]
  12. FOSAMAX [Concomitant]
  13. AVALIDE [Concomitant]

REACTIONS (11)
  - ACUTE MYOCARDIAL INFARCTION [None]
  - APNOEA [None]
  - CARDIAC ARREST [None]
  - CIRCULATORY COLLAPSE [None]
  - COMA [None]
  - CYANOSIS [None]
  - EMBOLISM [None]
  - PULSE ABSENT [None]
  - PUPIL FIXED [None]
  - RESPIRATORY FAILURE [None]
  - SYNCOPE [None]
